FAERS Safety Report 5495481-9 (Version None)
Quarter: 2007Q4

REPORT INFORMATION
  Report Type: 
  Country: None (occurrence: None)
  Receive Date: 20071023
  Receipt Date: 20071012
  Transmission Date: 20080405
  Serious: Yes (Hospitalization)
  Sender: FDA-Public Use
  Company Number: 2007S1008125

PATIENT
  Age: 50 Year
  Sex: Female

DRUGS (1)
  1. LEVOTHYROXINE SODIUM [Suspect]
     Indication: HYPOTHYROIDISM
     Dosage: 50 UG;X1;ORAL
     Route: 048
     Dates: start: 20070401, end: 20070401

REACTIONS (5)
  - DRUG HYPERSENSITIVITY [None]
  - ERUCTATION [None]
  - FLATULENCE [None]
  - PHARYNGEAL OEDEMA [None]
  - URTICARIA [None]
